FAERS Safety Report 14759296 (Version 1)
Quarter: 2018Q2

REPORT INFORMATION
  Report Type: Spontaneous
  Country: ES (occurrence: ES)
  Receive Date: 20180413
  Receipt Date: 20180413
  Transmission Date: 20180711
  Serious: Yes (Other)
  Sender: FDA-Public Use
  Company Number: ES-PFIZER INC-2018145422

PATIENT
  Age: 58 Year

DRUGS (2)
  1. GEMCITABINE HYDROCHLORIDE. [Suspect]
     Active Substance: GEMCITABINE HYDROCHLORIDE
     Indication: PANCREATIC CARCINOMA METASTATIC
     Dosage: 1000 MG/M2, UNK
     Route: 065
     Dates: start: 20170215
  2. ABRAXANE [Suspect]
     Active Substance: PACLITAXEL
     Indication: PANCREATIC CARCINOMA METASTATIC
     Dosage: 100 MG/M2, UNK
     Route: 041
     Dates: start: 20170215

REACTIONS (4)
  - Neutropenia [Unknown]
  - Asthenia [Unknown]
  - Neurotoxicity [Unknown]
  - Diarrhoea [Recovered/Resolved]
